FAERS Safety Report 9211099 (Version 1)
Quarter: 2013Q2

REPORT INFORMATION
  Report Type: Report from Study
  Country: US (occurrence: US)
  Receive Date: 20130404
  Receipt Date: 20130404
  Transmission Date: 20140414
  Serious: Yes (Other)
  Sender: FDA-Public Use
  Company Number: US-AMGEN-USACT2010006146

PATIENT
  Age: 70 Year
  Sex: Male

DRUGS (11)
  1. DENOSUMAB [Suspect]
     Indication: PROSTATE CANCER
     Dates: start: 20070501, end: 20100330
  2. ELIGARD [Concomitant]
     Dosage: 45 MG, Q6MO
     Route: 030
     Dates: start: 20050222
  3. LIPITOR [Concomitant]
     Dosage: 40 MG, QD
     Route: 048
     Dates: start: 200501
  4. CALCIUM W/VITAMIN D [Concomitant]
     Dosage: 600 MG, BID
     Route: 048
     Dates: start: 200612
  5. NORVASC [Concomitant]
     Dosage: UNK UNK, QD
     Route: 048
     Dates: start: 200501
  6. FLOMAX [Concomitant]
     Dosage: 0.4 MG, ONE TIME DOSE
     Route: 048
     Dates: start: 200501
  7. ASPIRIN (E.C.) [Concomitant]
     Dosage: 325 MG, QD
     Route: 048
     Dates: start: 200501
  8. TYLENOL ARTHRITIS [Concomitant]
     Dosage: UNK UNK, PRN
     Route: 048
     Dates: start: 2006
  9. ROLAIDS [Concomitant]
     Dosage: UNK UNK, PRN
     Route: 048
     Dates: start: 1997
  10. XIBROM [Concomitant]
     Dosage: UNK UNK, BID
     Route: 047
     Dates: start: 20071023
  11. PRAVACHOL [Concomitant]
     Dosage: 40 MG, QD
     Route: 048
     Dates: start: 20091109

REACTIONS (1)
  - Osteonecrosis of jaw [Not Recovered/Not Resolved]
